FAERS Safety Report 23178039 (Version 2)
Quarter: 2025Q3

REPORT INFORMATION
  Report Type: Spontaneous
  Country: EU (occurrence: EU)
  Receive Date: 20231113
  Receipt Date: 20250701
  Transmission Date: 20251020
  Serious: Yes (Other)
  Sender: SANDOZ
  Company Number: EU-NOVPHSZ-PHHY2018IT002050

PATIENT
  Age: 19 Year
  Sex: Female

DRUGS (39)
  1. BLINATUMOMAB [Suspect]
     Active Substance: BLINATUMOMAB
     Indication: Acute lymphocytic leukaemia
     Route: 065
  2. BLINATUMOMAB [Suspect]
     Active Substance: BLINATUMOMAB
     Route: 065
     Dates: start: 20161220
  3. BLINATUMOMAB [Suspect]
     Active Substance: BLINATUMOMAB
     Route: 065
     Dates: start: 20161220
  4. BLINCYTO [Suspect]
     Active Substance: BLINATUMOMAB
     Indication: Acute lymphocytic leukaemia
     Route: 042
     Dates: start: 20161220
  5. BUSULFAN [Suspect]
     Active Substance: BUSULFAN
     Indication: Acute lymphocytic leukaemia
     Route: 042
     Dates: start: 20150904
  6. CYCLOPHOSPHAMIDE [Suspect]
     Active Substance: CYCLOPHOSPHAMIDE
     Indication: Acute lymphocytic leukaemia
     Route: 042
  7. CYCLOPHOSPHAMIDE [Suspect]
     Active Substance: CYCLOPHOSPHAMIDE
     Route: 042
  8. CYTARABINE [Suspect]
     Active Substance: CYTARABINE
     Indication: Acute lymphocytic leukaemia
     Dosage: 2000 MG/M2, BID (CYCLIC (QL 2H) CYCLE 7))
     Route: 042
  9. CYTARABINE [Suspect]
     Active Substance: CYTARABINE
     Dosage: 4000 MG/M2, BID(CYCLIC (QL 2H) CYCLE 7)
     Route: 042
  10. CYTARABINE [Suspect]
     Active Substance: CYTARABINE
     Dosage: 75 MG/M2(CYCLIC (CYCLE 2))
     Route: 042
  11. CYTARABINE [Suspect]
     Active Substance: CYTARABINE
     Dosage: 75 MG/M2, QD (CYCLIC (CYCLE 2 DAY 2-5, 9-12))
     Route: 058
  12. CYTARABINE [Suspect]
     Active Substance: CYTARABINE
     Route: 058
  13. DEXAMETHASONE SODIUM PHOSPHATE [Suspect]
     Active Substance: DEXAMETHASONE SODIUM PHOSPHATE
     Route: 042
  14. DEXAMETHASONE SODIUM PHOSPHATE [Suspect]
     Active Substance: DEXAMETHASONE SODIUM PHOSPHATE
     Route: 042
  15. DEXAMETHASONE SODIUM PHOSPHATE [Suspect]
     Active Substance: DEXAMETHASONE SODIUM PHOSPHATE
     Route: 048
  16. DEXAMETHASONE SODIUM PHOSPHATE [Suspect]
     Active Substance: DEXAMETHASONE SODIUM PHOSPHATE
     Route: 048
  17. DEXAMETHASONE SODIUM PHOSPHATE [Suspect]
     Active Substance: DEXAMETHASONE SODIUM PHOSPHATE
     Indication: Acute lymphocytic leukaemia
     Route: 042
  18. FILGRASTIM [Suspect]
     Active Substance: FILGRASTIM
     Route: 058
  19. FILGRASTIM [Suspect]
     Active Substance: FILGRASTIM
     Route: 058
  20. FILGRASTIM [Suspect]
     Active Substance: FILGRASTIM
     Route: 058
  21. FILGRASTIM [Suspect]
     Active Substance: FILGRASTIM
     Route: 058
  22. FILGRASTIM [Suspect]
     Active Substance: FILGRASTIM
     Indication: Acute lymphocytic leukaemia
     Route: 058
  23. FILGRASTIM [Suspect]
     Active Substance: FILGRASTIM
     Route: 058
  24. FLUDARABINE [Suspect]
     Active Substance: FLUDARABINE PHOSPHATE
     Indication: Acute lymphocytic leukaemia
     Route: 065
     Dates: start: 20150904
  25. LEUCOVORIN [Suspect]
     Active Substance: LEUCOVORIN\LEUCOVORIN CALCIUM
     Indication: Acute lymphocytic leukaemia
     Route: 042
  26. IDARUBICIN [Suspect]
     Active Substance: IDARUBICIN
     Indication: Acute lymphocytic leukaemia
     Route: 042
  27. LENOGRASTIM [Suspect]
     Active Substance: LENOGRASTIM
     Route: 058
  28. LENOGRASTIM [Suspect]
     Active Substance: LENOGRASTIM
     Route: 065
  29. LENOGRASTIM [Suspect]
     Active Substance: LENOGRASTIM
     Indication: Acute lymphocytic leukaemia
     Route: 058
  30. LENOGRASTIM [Suspect]
     Active Substance: LENOGRASTIM
     Route: 058
  31. LENOGRASTIM [Suspect]
     Active Substance: LENOGRASTIM
     Route: 065
  32. METHOTREXATE [Suspect]
     Active Substance: METHOTREXATE
     Indication: Acute lymphocytic leukaemia
     Route: 042
  33. MERCAPTOPURINE [Suspect]
     Active Substance: MERCAPTOPURINE
     Indication: Acute lymphocytic leukaemia
     Route: 048
  34. PREDNISONE [Suspect]
     Active Substance: PREDNISONE
     Dosage: 40 MG/M2, BID ((QL 2 H CYCLIC)
     Route: 048
  35. PREDNISONE [Suspect]
     Active Substance: PREDNISONE
     Indication: Acute lymphocytic leukaemia
     Route: 048
  36. THIOTEPA [Suspect]
     Active Substance: THIOTEPA
     Indication: Acute lymphocytic leukaemia
     Route: 042
     Dates: start: 20150904
  37. VINCRISTINE SULFATE [Suspect]
     Active Substance: VINCRISTINE SULFATE
     Indication: Acute lymphocytic leukaemia
     Route: 042
  38. BESPONSA [Concomitant]
     Active Substance: INOTUZUMAB OZOGAMICIN
     Indication: Product used for unknown indication
     Route: 065
  39. INOTUZUMAB OZOGAMICIN [Concomitant]
     Active Substance: INOTUZUMAB OZOGAMICIN
     Indication: Product used for unknown indication
     Route: 065

REACTIONS (4)
  - Neurotoxicity [Recovered/Resolved]
  - Seizure [Recovered/Resolved]
  - Neoplasm recurrence [Unknown]
  - Acute lymphocytic leukaemia recurrent [Unknown]
